FAERS Safety Report 4526052-6 (Version None)
Quarter: 2004Q4

REPORT INFORMATION
  Report Type: 
  Country: None (occurrence: None)
  Receive Date: 20041213
  Receipt Date: 20041213
  Transmission Date: 20050328
  Serious: No
  Sender: FDA-Public Use
  Company Number: None

PATIENT
  Sex: Male
  Weight: 91.173 kg

DRUGS (1)
  1. LEVAQUIN [Suspect]
     Indication: CHOLANGITIS
     Dosage: 500MG  QD ORAL
     Route: 048

REACTIONS (5)
  - CHOLANGITIS [None]
  - DISEASE RECURRENCE [None]
  - SELF-MEDICATION [None]
  - TENDON DISORDER [None]
  - TENDON RUPTURE [None]
